FAERS Safety Report 4273587-X (Version None)
Quarter: 2004Q1

REPORT INFORMATION
  Report Type: 
  Country: None (occurrence: None)
  Receive Date: 20040116
  Receipt Date: 20040116
  Transmission Date: 20041129
  Serious: No
  Sender: FDA-Public Use
  Company Number: None

PATIENT
  Age: 71 Year
  Sex: Male
  Weight: 101.6 kg

DRUGS (1)
  1. FLUTAMIDE [Suspect]

REACTIONS (1)
  - LIVER FUNCTION TEST ABNORMAL [None]
